FAERS Safety Report 6397920-8 (Version None)
Quarter: 2009Q4

REPORT INFORMATION
  Report Type: 
  Country: None (occurrence: None)
  Receive Date: 20091006
  Receipt Date: 20090928
  Transmission Date: 20100525
  Serious: Yes (Other)
  Sender: FDA-Public Use
  Company Number: DSA_41450_2009

PATIENT
  Sex: Female
  Weight: 111.1766 kg

DRUGS (22)
  1. WELLBUTRIN XL [Suspect]
     Dosage: 150 MG QD ORAL
     Route: 048
     Dates: start: 20040101
  2. ADVAIR HFA [Suspect]
     Indication: ASTHMA
     Dosage: 1 DF BID, 1 PUFF TWICE PER DAY REPIRATORY (INHALATION)
     Route: 055
     Dates: start: 20081101, end: 20090531
  3. ADVAIR HFA [Suspect]
     Indication: BRONCHITIS
     Dosage: 1 DF BID, 1 PUFF TWICE PER DAY REPIRATORY (INHALATION)
     Route: 055
     Dates: start: 20081101, end: 20090531
  4. ADVAIR HFA [Suspect]
     Indication: WHEEZING
     Dosage: 1 DF BID, 1 PUFF TWICE PER DAY REPIRATORY (INHALATION)
     Route: 055
     Dates: start: 20081101, end: 20090531
  5. PRIMIDONE [Suspect]
     Indication: EPILEPSY
     Dosage: 250 MG TID ORAL (DOSAGE STOPPED)
     Route: 048
     Dates: start: 19650101, end: 19810101
  6. PRIMIDONE [Suspect]
     Indication: EPILEPSY
     Dosage: 250 MG TID ORAL (DOSAGE STOPPED)
     Route: 048
     Dates: start: 20010101
  7. METFORMIN HCL [Suspect]
     Indication: BLOOD TESTOSTERONE ABNORMAL
     Dosage: 500 MG BID ORAL
     Route: 048
     Dates: start: 20040101
  8. LITHIUM CARBONATE [Suspect]
     Indication: AFFECTIVE DISORDER
     Dosage: 300MG, BID ORAL
     Route: 048
     Dates: start: 20040101
  9. ESTRADIOL [Suspect]
     Indication: HYSTERECTOMY
     Dosage: 2 MG BID ORAL
     Route: 048
     Dates: start: 20060101
  10. DICYCLOMINE [Suspect]
     Indication: DYSPEPSIA
     Dosage: 10 MG QID ORAL
     Route: 048
     Dates: start: 20070101
  11. RELPAX [Suspect]
     Indication: MIGRAINE
     Dosage: 20 MG QD ORAL
     Route: 048
     Dates: start: 20030101
  12. PREVACID [Suspect]
     Indication: DYSPEPSIA
     Dosage: 30 MG BID ORAL
     Route: 048
     Dates: start: 20030101
  13. BUPROPION HCL [Suspect]
     Indication: SEASONAL AFFECTIVE DISORDER
     Dosage: 75 MG QD ORAL
     Route: 048
     Dates: start: 20010101
  14. FUNGOID /00310802/ (NOT SPECIFIED) [Suspect]
     Indication: ONYCHOMYCOSIS
     Dosage: DF TOPICAL
     Route: 061
     Dates: start: 20080101
  15. CLOTRIMAZOLE [Suspect]
     Indication: FUNGAL INFECTION
     Dosage: DF
     Dates: start: 20080101
  16. PAXIL [Suspect]
     Indication: DRUG USE FOR UNKNOWN INDICATION
     Dosage: DF
  17. XOPENEX [Concomitant]
  18. CARAFATE [Concomitant]
  19. MICONAZOLE NITRATE [Concomitant]
  20. LITHIUM [Concomitant]
  21. BUSPIRONE HCL [Concomitant]
  22. TRANSDERM SQ [Concomitant]

REACTIONS (10)
  - AURICULAR SWELLING [None]
  - BLINDNESS TRANSIENT [None]
  - DEAFNESS TRANSITORY [None]
  - DRUG HYPERSENSITIVITY [None]
  - ERYTHEMA [None]
  - FEELING ABNORMAL [None]
  - HYPERACUSIS [None]
  - LOCAL SWELLING [None]
  - LOSS OF CONSCIOUSNESS [None]
  - PRURITUS [None]
